FAERS Safety Report 6964972-3 (Version None)
Quarter: 2010Q3

REPORT INFORMATION
  Report Type: 
  Country: None (occurrence: None)
  Receive Date: 20100903
  Receipt Date: 20100827
  Transmission Date: 20110219
  Serious: Yes (Other)
  Sender: FDA-Public Use
  Company Number: US-BAYER-201032098NA

PATIENT
  Sex: Male

DRUGS (1)
  1. TRASYLOL [Suspect]
     Indication: CARDIAC OPERATION
     Route: 042
     Dates: start: 20041201

REACTIONS (4)
  - INJURY [None]
  - POST-TRAUMATIC PAIN [None]
  - RENAL FAILURE [None]
  - RENAL FAILURE ACUTE [None]
